FAERS Safety Report 9429261 (Version 1)
Quarter: 2013Q3

REPORT INFORMATION
  Report Type: Spontaneous
  Country: MT (occurrence: MT)
  Receive Date: 20130730
  Receipt Date: 20130730
  Transmission Date: 20140515
  Serious: Yes (Other)
  Sender: FDA-Public Use
  Company Number: MT-ASTRAZENECA-2013SE55098

PATIENT
  Sex: Male

DRUGS (1)
  1. ATACAND PLUS [Suspect]
     Indication: HYPERTENSION
     Dosage: ONCE DAILY
     Route: 048

REACTIONS (2)
  - Local swelling [Unknown]
  - Renal failure [Unknown]
